FAERS Safety Report 7622617-3 (Version None)
Quarter: 2011Q3

REPORT INFORMATION
  Report Type: 
  Country: None (occurrence: None)
  Receive Date: 20110719
  Receipt Date: 20110719
  Transmission Date: 20111222
  Serious: Yes (Life-Threatening, Hospitalization)
  Sender: FDA-Public Use
  Company Number: None

PATIENT
  Age: 76 Year
  Sex: Male
  Weight: 75.2971 kg

DRUGS (5)
  1. NEXIUM [Concomitant]
  2. AVELOX [Suspect]
     Indication: PNEUMONIA
     Dosage: 400MG DAILY PO
     Route: 048
     Dates: start: 20110504, end: 20110510
  3. MIDAZOLAM HCL [Concomitant]
  4. AVELOX [Suspect]
     Indication: PNEUMONIA
     Dosage: 400MG DAILY IV
     Route: 042
     Dates: start: 20110430, end: 20110503
  5. FENTANYL [Concomitant]

REACTIONS (1)
  - ANAEMIA HAEMOLYTIC AUTOIMMUNE [None]
